FAERS Safety Report 9059323 (Version 1)
Quarter: 2013Q1

REPORT INFORMATION
  Report Type: Spontaneous
  Country: IN (occurrence: IN)
  Receive Date: 20130211
  Receipt Date: 20130211
  Transmission Date: 20140127
  Serious: Yes (Hospitalization)
  Sender: FDA-Public Use
  Company Number: IN-UCBSA-077526

PATIENT
  Age: 72 Year
  Sex: Male

DRUGS (1)
  1. KEPPRA [Suspect]
     Dosage: 20 TABLETS OF 250 MG / 5000MG
     Route: 048

REACTIONS (1)
  - Overdose [Recovered/Resolved]
